FAERS Safety Report 11186042 (Version 1)
Quarter: 2015Q2

REPORT INFORMATION
  Report Type: Spontaneous
  Country: FR (occurrence: FR)
  Receive Date: 20150612
  Receipt Date: 20150612
  Transmission Date: 20150821
  Serious: Yes (Other)
  Sender: FDA-Public Use
  Company Number: FR-009507513-1506FRA005358

PATIENT
  Age: 78 Year
  Sex: Male

DRUGS (7)
  1. SPECIAFOLDINE [Concomitant]
     Active Substance: FOLIC ACID
  2. CORTANCYL [Suspect]
     Active Substance: PREDNISONE
     Indication: RHEUMATOID ARTHRITIS
     Dosage: 5 MG, QD
     Route: 048
  3. DAFALGAN [Concomitant]
     Active Substance: ACETAMINOPHEN
  4. OMIX LP [Concomitant]
     Active Substance: TAMSULOSIN HYDROCHLORIDE
     Dosage: PROLONGED RELEASE MICROGRANULES IN CAPSULES
  5. ONCOTICE [Suspect]
     Active Substance: BACILLUS CALMETTE-GUERIN SUBSTRAIN TICE LIVE ANTIGEN
     Indication: BLADDER TRANSITIONAL CELL CARCINOMA
     Dosage: 81 MG, QW
     Route: 043
     Dates: start: 20150105, end: 201502
  6. CACIT VITAMINE D3 [Concomitant]
     Active Substance: CALCIUM CARBONATE\CHOLECALCIFEROL
  7. NOVATREX (METHOTREXATE) [Suspect]
     Active Substance: METHOTREXATE SODIUM
     Indication: RHEUMATOID ARTHRITIS
     Dosage: UNK
     Route: 048
     Dates: end: 201501

REACTIONS (2)
  - Bovine tuberculosis [Recovering/Resolving]
  - Miliary pneumonia [Recovering/Resolving]

NARRATIVE: CASE EVENT DATE: 201501
